FAERS Safety Report 10074708 (Version 3)
Quarter: 2014Q2

REPORT INFORMATION
  Report Type: Spontaneous
  Country: IT (occurrence: IT)
  Receive Date: 20140414
  Receipt Date: 20140610
  Transmission Date: 20141212
  Serious: Yes (Other)
  Sender: FDA-Public Use
  Company Number: IT-009507513-1404ITA005724

PATIENT
  Age: 55 Year
  Sex: Male

DRUGS (3)
  1. PEGINTRON [Suspect]
     Indication: CHRONIC HEPATITIS C
     Dosage: 1 DOSE UNIT, QW
     Route: 058
     Dates: start: 20140121
  2. INCIVEK [Suspect]
     Indication: CHRONIC HEPATITIS C
     Dosage: 2250 MG TOTAL DAILY DOSE, QD
     Route: 048
     Dates: start: 20140121
  3. COPEGUS [Concomitant]
     Indication: CHRONIC HEPATITIS C
     Dosage: 600 MG
     Route: 048
     Dates: start: 20140121

REACTIONS (2)
  - Muscle spasms [Recovering/Resolving]
  - Insomnia [Recovering/Resolving]
